FAERS Safety Report 13040829 (Version 1)
Quarter: 2016Q4

REPORT INFORMATION
  Report Type: Spontaneous
  Country: US (occurrence: US)
  Receive Date: 20161219
  Receipt Date: 20161219
  Transmission Date: 20170207
  Serious: No
  Sender: FDA-Public Use
  Company Number: US-PFIZER INC-2016574030

PATIENT
  Age: 13 Year
  Sex: Male

DRUGS (6)
  1. VENTOLIN [Concomitant]
     Active Substance: ALBUTEROL SULFATE
     Dosage: 2 DF, AS NEEDED  (90 MCG/PUFF ORAL INHALER, INHALE 2 PUFFS INTO THE LUNGS EVERY 4 HOURS)
     Route: 055
  2. GENOTROPIN [Suspect]
     Active Substance: SOMATROPIN
     Dosage: 1.4 MG, DAILY (NIGHTLY/0.25 MG/KG/WK)
     Route: 058
  3. GENOTROPIN [Suspect]
     Active Substance: SOMATROPIN
     Indication: DELAYED PUBERTY
     Dosage: 1.2 MG, DAILY
     Route: 058
     Dates: start: 20160917
  4. BACITRACIN. [Concomitant]
     Active Substance: BACITRACIN
     Dosage: UNK, 3X/DAY (500 UNIT/GM OINTMENT, APPLY TOPICALLY 3 TIMES DAILY)
  5. PROVENTIL [Concomitant]
     Active Substance: ALBUTEROL
     Dosage: 2 DF, AS NEEDED  (90 MCG/PUFF ORAL INHALER, INHALE 2 PUFFS INTO THE LUNGS EVERY 4 HOURS)
     Route: 055
  6. GENOTROPIN [Suspect]
     Active Substance: SOMATROPIN
     Indication: GROWTH HORMONE DEFICIENCY
     Dosage: 1.2 MG, UNK ( NIGHTLY- 0.21 MG/KG/WK (STARTED IN AUG2016; USING 12 MG PEN)
     Route: 058
     Dates: start: 201608

REACTIONS (1)
  - Headache [Recovered/Resolved]

NARRATIVE: CASE EVENT DATE: 201610
